FAERS Safety Report 4530406-1 (Version None)
Quarter: 2004Q4

REPORT INFORMATION
  Report Type: 
  Country: None (occurrence: None)
  Receive Date: 20041215
  Receipt Date: 20041201
  Transmission Date: 20050328
  Serious: No
  Sender: FDA-Public Use
  Company Number: 2004AP06151

PATIENT
  Age: 42 Year
  Sex: Female

DRUGS (1)
  1. XYLOCAINE [Suspect]
     Indication: INFILTRATION ANAESTHESIA
     Dosage: 1.2 ML DI
     Dates: start: 20041123, end: 20041123

REACTIONS (5)
  - ANAESTHETIC COMPLICATION [None]
  - MUSCLE CRAMP [None]
  - PHARMACEUTICAL PRODUCT COMPLAINT [None]
  - PULSE PRESSURE DECREASED [None]
  - TACHYCARDIA [None]
